FAERS Safety Report 8010273-4 (Version None)
Quarter: 2011Q4

REPORT INFORMATION
  Report Type: 
  Country: None (occurrence: None)
  Receive Date: 20111221
  Receipt Date: 20111214
  Transmission Date: 20120403
  Serious: Yes (Hospitalization)
  Sender: FDA-Public Use
  Company Number: 2011SP045111

PATIENT
  Age: 5 Year
  Sex: Male

DRUGS (2)
  1. DEXAMETHASONE [Suspect]
     Indication: PRODUCT USED FOR UNKNOWN INDICATION
     Dosage: 2.5 MG;QD;PO
     Route: 048
     Dates: start: 20110906
  2. LISINOPRIL [Concomitant]

REACTIONS (3)
  - HYPERTENSION [None]
  - SINUS TACHYCARDIA [None]
  - DEVICE RELATED INFECTION [None]
